FAERS Safety Report 9701393 (Version 2)
Quarter: 2015Q3

REPORT INFORMATION
  Report Type: Spontaneous
  Country: US (occurrence: US)
  Receive Date: 20131121
  Receipt Date: 20150803
  Transmission Date: 20151125
  Serious: No
  Sender: FDA-Public Use
  Company Number: US-GILEAD-2008-0016689

PATIENT
  Age: 67 Year
  Sex: Male
  Weight: 106.14 kg

DRUGS (8)
  1. GARLIC. [Concomitant]
     Active Substance: GARLIC
     Route: 048
  2. LETAIRIS [Suspect]
     Active Substance: AMBRISENTAN
     Indication: PULMONARY ARTERIAL HYPERTENSION
     Route: 048
     Dates: start: 20080514
  3. AMLODIPINE [Concomitant]
     Active Substance: AMLODIPINE BESYLATE
     Route: 048
  4. WARFARIN [Concomitant]
     Active Substance: WARFARIN
     Route: 048
  5. CALCIUM + D [Concomitant]
     Active Substance: CALCIUM\VITAMIN D
     Route: 048
  6. WARFARIN [Concomitant]
     Active Substance: WARFARIN
     Route: 048
  7. ACID REDUCER [Concomitant]
     Active Substance: CIMETIDINE\FAMOTIDINE\RANITIDINE HYDROCHLORIDE
     Route: 048
  8. SIMVASTATIN. [Concomitant]
     Active Substance: SIMVASTATIN
     Route: 048

REACTIONS (4)
  - Cough [Recovered/Resolved]
  - Upper respiratory tract congestion [Recovered/Resolved]
  - Flushing [Recovered/Resolved]
  - Nasal congestion [Recovered/Resolved]

NARRATIVE: CASE EVENT DATE: 20080524
